FAERS Safety Report 20959513 (Version 1)
Quarter: 2022Q2

REPORT INFORMATION
  Report Type: Spontaneous
  Country: US (occurrence: US)
  Receive Date: 20220614
  Receipt Date: 20220614
  Transmission Date: 20220721
  Serious: Yes (Death, Other)
  Sender: FDA-Public Use
  Company Number: US-SA-SAC20220610001727

PATIENT
  Age: 70 Year
  Sex: Male

DRUGS (1)
  1. ZANTAC [Suspect]
     Active Substance: RANITIDINE HYDROCHLORIDE
     Indication: Dyspepsia
     Dosage: UNK, FREQUENCY: OTHER
     Dates: start: 200501, end: 201610

REACTIONS (3)
  - Hepatic cancer [Fatal]
  - Lung neoplasm malignant [Fatal]
  - Bone cancer [Fatal]

NARRATIVE: CASE EVENT DATE: 20180101
